FAERS Safety Report 20135888 (Version 1)
Quarter: 2021Q4

REPORT INFORMATION
  Report Type: Spontaneous
  Country: CA (occurrence: CA)
  Receive Date: 20211201
  Receipt Date: 20211201
  Transmission Date: 20220303
  Serious: Yes (Life-Threatening, Hospitalization, Other)
  Sender: FDA-Public Use
  Company Number: CA-PFIZER INC-202101618712

PATIENT
  Age: 24 Year
  Sex: Male
  Weight: 150 kg

DRUGS (10)
  1. SUCCINYLCHOLINE CHLORIDE [Suspect]
     Active Substance: SUCCINYLCHOLINE CHLORIDE
     Dosage: 300 MG, SINGLE
     Route: 042
  2. SEVOFLURANE [Suspect]
     Active Substance: SEVOFLURANE
     Dosage: UNK
  3. SEVOFLURANE [Suspect]
     Active Substance: SEVOFLURANE
     Dosage: UNK
  4. CEFAZOLIN [Concomitant]
     Active Substance: CEFAZOLIN
  5. CYCLOBENZAPRINE [Concomitant]
     Active Substance: CYCLOBENZAPRINE
  6. FENTANYL [Concomitant]
     Active Substance: FENTANYL
  7. MIDAZOLAM [Concomitant]
     Active Substance: MIDAZOLAM
  8. NAPROXEN [Concomitant]
     Active Substance: NAPROXEN
  9. PROPOFOL [Concomitant]
     Active Substance: PROPOFOL
  10. ROCURONIUM [Concomitant]
     Active Substance: ROCURONIUM BROMIDE

REACTIONS (5)
  - Acidosis [Recovered/Resolved]
  - Acute kidney injury [Recovered/Resolved]
  - Electrolyte imbalance [Recovered/Resolved]
  - Hyperkalaemia [Recovered/Resolved]
  - Hyperthermia malignant [Recovered/Resolved]
